FAERS Safety Report 23649454 (Version 1)
Quarter: 2024Q1

REPORT INFORMATION
  Report Type: Spontaneous
  Country: US (occurrence: US)
  Receive Date: 20240319
  Receipt Date: 20240319
  Transmission Date: 20240409
  Serious: Yes (Other)
  Sender: FDA-Public Use
  Company Number: US-BRISTOL-MYERS SQUIBB COMPANY-2024-040619

PATIENT
  Age: 15 Year
  Sex: Female

DRUGS (1)
  1. KENALOG [Suspect]
     Active Substance: TRIAMCINOLONE ACETONIDE
     Indication: Wound treatment
     Dosage: DOSE : 80 MG;     FREQ : ONCE ON BOTH SIDES OF INCISION

REACTIONS (4)
  - Post procedural infection [Unknown]
  - Drug hypersensitivity [Unknown]
  - Incision site impaired healing [Unknown]
  - Off label use [Unknown]

NARRATIVE: CASE EVENT DATE: 20240201
